FAERS Safety Report 8201923-8 (Version None)
Quarter: 2012Q1

REPORT INFORMATION
  Report Type: 
  Country: None (occurrence: None)
  Receive Date: 20120312
  Receipt Date: 20120301
  Transmission Date: 20120608
  Serious: Yes (Other)
  Sender: FDA-Public Use
  Company Number: PHFR2012GB001492

PATIENT
  Sex: Female

DRUGS (4)
  1. TEGRETOL [Suspect]
     Indication: EPILEPSY
     Dosage: 500 MG, BID
  2. PHENYTOIN [Concomitant]
     Indication: EPILEPSY
  3. KEPPRA [Concomitant]
     Indication: EPILEPSY
  4. CLOBAZAM [Concomitant]
     Indication: EPILEPSY

REACTIONS (3)
  - VERTIGO [None]
  - DISORIENTATION [None]
  - LOSS OF CONSCIOUSNESS [None]
